FAERS Safety Report 7712155-1 (Version None)
Quarter: 2011Q3

REPORT INFORMATION
  Report Type: 
  Country: None (occurrence: None)
  Receive Date: 20110826
  Receipt Date: 20110818
  Transmission Date: 20111222
  Serious: Yes (Hospitalization)
  Sender: FDA-Public Use
  Company Number: CH-JNJFOC-20110809224

PATIENT
  Age: 49 Year
  Sex: Female
  Weight: 80 kg

DRUGS (1)
  1. XARELTO [Suspect]
     Indication: JOINT PROSTHESIS USER
     Route: 048
     Dates: start: 20110618, end: 20110620

REACTIONS (1)
  - VENOUS THROMBOSIS [None]
